FAERS Safety Report 18667704 (Version 1)
Quarter: 2020Q4

REPORT INFORMATION
  Report Type: Spontaneous
  Country: GB (occurrence: GB)
  Receive Date: 20201228
  Receipt Date: 20201228
  Transmission Date: 20210114
  Serious: Yes (Disabling)
  Sender: FDA-Public Use
  Company Number: GB-ROCHE-2735554

PATIENT
  Age: 74 Year
  Sex: Female
  Weight: 82 kg

DRUGS (4)
  1. LEVOTHYROXINE. [Concomitant]
     Active Substance: LEVOTHYROXINE
  2. LETROZOLE. [Concomitant]
     Active Substance: LETROZOLE
  3. HERZUMA [Suspect]
     Active Substance: TRASTUZUMAB-PKRB
     Indication: NEOADJUVANT THERAPY
     Dosage: 11 DOSES
     Route: 042
     Dates: start: 20200213, end: 20201111
  4. PERTUZUMAB. [Suspect]
     Active Substance: PERTUZUMAB
     Indication: NEOADJUVANT THERAPY
     Route: 042
     Dates: start: 20200213, end: 20201111

REACTIONS (6)
  - Skin plaque [Unknown]
  - Skin necrosis [Unknown]
  - Skin abrasion [Unknown]
  - Erythema [Unknown]
  - Pruritus [Unknown]
  - Rash papular [Recovering/Resolving]

NARRATIVE: CASE EVENT DATE: 20200424
